FAERS Safety Report 6442834-8 (Version None)
Quarter: 2009Q4

REPORT INFORMATION
  Report Type: 
  Country: None (occurrence: None)
  Receive Date: 20091117
  Receipt Date: 20091112
  Transmission Date: 20100525
  Serious: No
  Sender: FDA-Public Use
  Company Number: US-B.I. PHARMACEUTICALS,INC./RIDGEFIELD-2009-BP-13228BP

PATIENT
  Sex: Male

DRUGS (1)
  1. SPIRIVA [Suspect]
     Indication: CHRONIC OBSTRUCTIVE PULMONARY DISEASE
     Dosage: 18 MCG
     Route: 055
     Dates: start: 20091102, end: 20091111

REACTIONS (6)
  - BLOOD PRESSURE INCREASED [None]
  - COLOUR BLINDNESS ACQUIRED [None]
  - DIPLOPIA [None]
  - DRUG INEFFECTIVE [None]
  - NECK PAIN [None]
  - STRABISMUS [None]
